FAERS Safety Report 6781984-3 (Version None)
Quarter: 2010Q2

REPORT INFORMATION
  Report Type: 
  Country: None (occurrence: None)
  Receive Date: 20100618
  Receipt Date: 20100618
  Transmission Date: 20101027
  Serious: Yes (Hospitalization)
  Sender: FDA-Public Use
  Company Number: None

PATIENT
  Age: 60 Year
  Sex: Female
  Weight: 136 kg

DRUGS (17)
  1. LOVENOX [Suspect]
     Indication: ATRIAL FIBRILLATION
     Dosage: 140 MG BID SQ
     Route: 058
     Dates: start: 20100521, end: 20100530
  2. LOVENOX [Suspect]
     Indication: DEEP VEIN THROMBOSIS
     Dosage: 140 MG BID SQ
     Route: 058
     Dates: start: 20100521, end: 20100530
  3. LOVENOX [Suspect]
     Indication: DRUG THERAPY
     Dosage: 140 MG BID SQ
     Route: 058
     Dates: start: 20100521, end: 20100530
  4. LOVENOX [Suspect]
     Indication: PULMONARY EMBOLISM
     Dosage: 140 MG BID SQ
     Route: 058
     Dates: start: 20100521, end: 20100530
  5. WARFARIN SODIUM [Suspect]
     Indication: ATRIAL FIBRILLATION
     Dosage: 5 MG 6X1 WEEK 2.5 DAY Q WED. DAILY PO CHRONIC SINCE 2007
     Route: 048
     Dates: start: 20070101
  6. WARFARIN SODIUM [Suspect]
     Indication: DEEP VEIN THROMBOSIS
     Dosage: 5 MG 6X1 WEEK 2.5 DAY Q WED. DAILY PO CHRONIC SINCE 2007
     Route: 048
     Dates: start: 20070101
  7. WARFARIN SODIUM [Suspect]
     Indication: DRUG THERAPY
     Dosage: 5 MG 6X1 WEEK 2.5 DAY Q WED. DAILY PO CHRONIC SINCE 2007
     Route: 048
     Dates: start: 20070101
  8. WARFARIN SODIUM [Suspect]
     Indication: PULMONARY EMBOLISM
     Dosage: 5 MG 6X1 WEEK 2.5 DAY Q WED. DAILY PO CHRONIC SINCE 2007
     Route: 048
     Dates: start: 20070101
  9. VIACTIVE MULTIVITAMIN [Concomitant]
  10. BUMETANIDE [Concomitant]
  11. CALCIUM CARBONATE [Concomitant]
  12. DIGOXIN [Concomitant]
  13. DILTIAZEM [Concomitant]
  14. IBUPROFEN [Concomitant]
  15. LEVOTHYROXINE SODIUM [Concomitant]
  16. METOPROLOL TARTRATE [Concomitant]
  17. POTASSIUM CHLORIDE [Concomitant]

REACTIONS (3)
  - OVARIAN CYST [None]
  - RETROPERITONEAL HAEMORRHAGE [None]
  - UTERINE CANCER [None]
